FAERS Safety Report 21063487 (Version 3)
Quarter: 2022Q3

REPORT INFORMATION
  Report Type: Report from Study
  Country: AR (occurrence: AR)
  Receive Date: 20220711
  Receipt Date: 20220830
  Transmission Date: 20221027
  Serious: Yes (Death, Other)
  Sender: FDA-Public Use
  Company Number: AR-NOVARTISPH-NVSC2022AR156323

PATIENT
  Sex: Female

DRUGS (1)
  1. KISQALI [Suspect]
     Active Substance: RIBOCICLIB
     Indication: Breast cancer metastatic
     Dosage: 600 MG, QD
     Route: 048
     Dates: start: 20220615

REACTIONS (9)
  - Syncope [Fatal]
  - Fall [Fatal]
  - Head injury [Fatal]
  - Blindness unilateral [Unknown]
  - Metastases to liver [Unknown]
  - Oral mucosal eruption [Unknown]
  - Blood pressure fluctuation [Unknown]
  - Contusion [Unknown]
  - Visual impairment [Unknown]
